FAERS Safety Report 6917817-1 (Version None)
Quarter: 2010Q3

REPORT INFORMATION
  Report Type: 
  Country: None (occurrence: None)
  Receive Date: 20100810
  Receipt Date: 20100804
  Transmission Date: 20110219
  Serious: Yes (Hospitalization, Other)
  Sender: FDA-Public Use
  Company Number: US-AMGEN-QUU406549

PATIENT
  Sex: Male
  Weight: 103.1 kg

DRUGS (3)
  1. NPLATE [Suspect]
     Indication: THROMBOCYTOPENIA
     Dates: start: 20090601, end: 20090801
  2. IMDUR [Concomitant]
     Route: 048
  3. UNSPECIFIED BETA BLOCKER [Concomitant]

REACTIONS (11)
  - ACUTE MYELOID LEUKAEMIA [None]
  - ACUTE PRERENAL FAILURE [None]
  - ADVERSE DRUG REACTION [None]
  - ANXIETY [None]
  - DECREASED APPETITE [None]
  - DELIRIUM [None]
  - DRUG INEFFECTIVE [None]
  - MUSCULOSKELETAL CHEST PAIN [None]
  - MYOCARDIAL ISCHAEMIA [None]
  - NAUSEA [None]
  - PNEUMONIA [None]
